FAERS Safety Report 8426970-2 (Version None)
Quarter: 2012Q2

REPORT INFORMATION
  Report Type: 
  Country: None (occurrence: None)
  Receive Date: 20120611
  Receipt Date: 20120531
  Transmission Date: 20120825
  Serious: Yes (Hospitalization)
  Sender: FDA-Public Use
  Company Number: DE-ROCHE-1074250

PATIENT
  Sex: Male
  Weight: 64 kg

DRUGS (3)
  1. DEXAMETHASONE SODIUM PHOSPHATE [Concomitant]
  2. AVASTIN [Suspect]
     Indication: COLON CANCER METASTATIC
     Route: 042
     Dates: start: 20120328, end: 20120411
  3. GRANISETRON [Concomitant]
     Route: 042

REACTIONS (3)
  - CEREBRAL INFARCTION [None]
  - HEMIPARESIS [None]
  - CONFUSIONAL STATE [None]
